FAERS Safety Report 5404078-8 (Version None)
Quarter: 2007Q3

REPORT INFORMATION
  Report Type: 
  Country: None (occurrence: None)
  Receive Date: 20070731
  Receipt Date: 20070720
  Transmission Date: 20080115
  Serious: Yes (Congenital Anomaly)
  Sender: FDA-Public Use
  Company Number: 2007AL002938

PATIENT
  Age: 6 Month
  Sex: 0

DRUGS (4)
  1. DIAZEPAM [Suspect]
     Indication: DRUG EXPOSURE DURING PREGNANCY
     Dosage: TRPL
     Route: 064
  2. METHADONE HCL [Concomitant]
  3. DIHYDROCODEINE BITARTRATE INJ [Concomitant]
  4. AMPHETAMINE [Concomitant]

REACTIONS (5)
  - CONGENITAL NYSTAGMUS [None]
  - DEVELOPMENTAL DELAY [None]
  - DRUG EXPOSURE DURING PREGNANCY [None]
  - MICROCEPHALY [None]
  - VISUAL DISTURBANCE [None]
